FAERS Safety Report 11713409 (Version 1)
Quarter: 2015Q4

REPORT INFORMATION
  Report Type: Spontaneous
  Country: CA (occurrence: CA)
  Receive Date: 20151109
  Receipt Date: 20151109
  Transmission Date: 20160304
  Serious: Yes (Other)
  Sender: FDA-Public Use
  Company Number: CA-AMGEN-CANSP2015115197

PATIENT
  Age: 65 Year
  Sex: Female

DRUGS (4)
  1. SULFASALAZINE. [Concomitant]
     Active Substance: SULFASALAZINE
     Dosage: 2 G, UNK
     Dates: start: 2011
  2. NAPROXIN                           /00256201/ [Concomitant]
     Active Substance: NAPROXEN
     Dosage: UNK
  3. ENBREL [Suspect]
     Active Substance: ETANERCEPT
     Indication: RHEUMATOID ARTHRITIS
     Dosage: UNK
     Route: 065
  4. XELJANZ [Concomitant]
     Active Substance: TOFACITINIB CITRATE
     Dosage: 5 MG, BID

REACTIONS (7)
  - Pain [Unknown]
  - Drug ineffective [Unknown]
  - Synovitis [Unknown]
  - Fatigue [Unknown]
  - C-reactive protein abnormal [Unknown]
  - Knee arthroplasty [Unknown]
  - Mobility decreased [Unknown]

NARRATIVE: CASE EVENT DATE: 2013
